FAERS Safety Report 10901727 (Version 1)
Quarter: 2015Q1

REPORT INFORMATION
  Report Type: Spontaneous
  Country: US (occurrence: None)
  Receive Date: 20150303
  Receipt Date: 20150303
  Transmission Date: 20150721
  Serious: Yes (Disabling)
  Sender: FDA-Public Use
  Company Number: None

PATIENT
  Age: 34 Year
  Sex: Female

DRUGS (1)
  1. METFORMIN HCL [Suspect]
     Active Substance: METFORMIN HYDROCHLORIDE
     Indication: INFERTILITY
     Dosage: 1 TABLET
     Route: 048
     Dates: start: 20141211, end: 20150111

REACTIONS (2)
  - Bladder pain [None]
  - Product quality issue [None]

NARRATIVE: CASE EVENT DATE: 20150111
